FAERS Safety Report 8828309 (Version 3)
Quarter: 2012Q4

REPORT INFORMATION
  Report Type: 
  Country: BE (occurrence: BE)
  Receive Date: 20121005
  Receipt Date: 20121025
  Transmission Date: 20130627
  Serious: Yes (Other)
  Sender: FDA-Public Use
  Company Number: BE-PFIZER INC-2012246062

PATIENT
  Age: 60 Year
  Sex: Male

DRUGS (13)
  1. ZIDOVUDINE [Suspect]
     Indication: ANTIRETROVIRAL THERAPY
     Dosage: UNK
     Dates: start: 200401, end: 200508
  2. NELFINAVIR MESILATE [Interacting]
     Indication: ANTIRETROVIRAL THERAPY
     Dosage: UNK
     Dates: start: 200401, end: 200508
  3. NELFINAVIR MESILATE [Interacting]
     Dosage: UNK
     Route: 065
     Dates: start: 20060811
  4. LAMIVUDINE [Interacting]
     Indication: ANTIRETROVIRAL THERAPY
     Dosage: UNK
     Route: 065
     Dates: start: 200401, end: 200508
  5. LAMIVUDINE [Interacting]
     Dosage: UNK
     Route: 065
     Dates: start: 200508, end: 20051028
  6. SAQUINAVIR [Interacting]
     Indication: ANTIRETROVIRAL THERAPY
     Dosage: UNK
     Route: 065
     Dates: start: 200501, end: 200508
  7. TENOFOVIR [Interacting]
     Indication: ANTIRETROVIRAL THERAPY
     Dosage: UNK
     Route: 065
     Dates: start: 200508, end: 20051028
  8. TENOFOVIR [Interacting]
     Dosage: UNK
     Route: 065
     Dates: start: 20060811
  9. EMTRICITABINE [Interacting]
     Indication: ANTIRETROVIRAL THERAPY
     Dosage: UNK
     Route: 065
     Dates: start: 20060811
  10. ATAZANAVIR [Interacting]
     Indication: ANTIRETROVIRAL THERAPY
     Dosage: UNK
     Route: 065
     Dates: start: 200508, end: 20051028
  11. FLUTICASONE PROPIONATE\SALMETEROL XINAFOATE [Interacting]
     Indication: CHRONIC OBSTRUCTIVE PULMONARY DISEASE
     Dosage: 50/500 ug, 2x/day
     Route: 055
  12. RITONAVIR [Interacting]
     Indication: ANTIRETROVIRAL THERAPY
     Dosage: UNK
     Route: 065
     Dates: start: 200508, end: 20051028
  13. BUDESONIDE\FORMOTEROL FUMARATE [Interacting]
     Indication: CHRONIC OBSTRUCTIVE PULMONARY DISEASE
     Dosage: 160 ug/4.5 ug
     Route: 055

REACTIONS (3)
  - Drug interaction [Recovered/Resolved]
  - Cushing^s syndrome [Recovered/Resolved]
  - Cellulitis staphylococcal [None]
